FAERS Safety Report 6219925-X (Version None)
Quarter: 2009Q2

REPORT INFORMATION
  Report Type: 
  Country: None (occurrence: None)
  Receive Date: 20090609
  Receipt Date: 20090529
  Transmission Date: 20091009
  Serious: Yes (Other)
  Sender: FDA-Public Use
  Company Number: US-JNJFOC-20090401745

PATIENT
  Sex: Female
  Weight: 88.91 kg

DRUGS (3)
  1. REMICADE [Suspect]
     Route: 042
  2. REMICADE [Suspect]
     Indication: RHEUMATOID ARTHRITIS
     Route: 042
  3. SOLU-CORTEF [Concomitant]
     Indication: PREMEDICATION
     Route: 042

REACTIONS (12)
  - BACK PAIN [None]
  - BREAST CANCER [None]
  - CHEST DISCOMFORT [None]
  - COUGH [None]
  - DRUG SPECIFIC ANTIBODY PRESENT [None]
  - HYPOAESTHESIA [None]
  - INFUSION RELATED REACTION [None]
  - LEUKOPENIA [None]
  - OSTEOARTHRITIS [None]
  - PYREXIA [None]
  - RASH [None]
  - URTICARIA [None]
